FAERS Safety Report 19611496 (Version 1)
Quarter: 2021Q3

REPORT INFORMATION
  Report Type: Spontaneous
  Country: DE (occurrence: DE)
  Receive Date: 20210726
  Receipt Date: 20210726
  Transmission Date: 20211014
  Serious: Yes (Other)
  Sender: FDA-Public Use
  Company Number: DE-BAUSCH-BL-2021-025113

PATIENT
  Sex: Female

DRUGS (8)
  1. OLANZAPIN [Suspect]
     Active Substance: OLANZAPINE
     Route: 065
     Dates: start: 20200623, end: 20200712
  2. OLANZAPIN [Suspect]
     Active Substance: OLANZAPINE
     Indication: SLEEP DISORDER
     Route: 065
     Dates: start: 20200720, end: 20200726
  3. VENLAFAXINE [Suspect]
     Active Substance: VENLAFAXINE HYDROCHLORIDE
     Indication: PRODUCT USED FOR UNKNOWN INDICATION
     Dosage: B.A.W.
     Route: 065
     Dates: start: 20200301
  4. OLANZAPIN [Suspect]
     Active Substance: OLANZAPINE
     Route: 065
     Dates: start: 20200727, end: 20200730
  5. VENLAFAXIN [Suspect]
     Active Substance: VENLAFAXINE HYDROCHLORIDE
     Indication: PRODUCT USED FOR UNKNOWN INDICATION
     Dosage: B.A.W.
     Route: 065
     Dates: start: 20200301
  6. OLANZAPIN [Suspect]
     Active Substance: OLANZAPINE
     Indication: THINKING ABNORMAL
     Route: 065
     Dates: start: 20200301, end: 20200622
  7. MONTELUKAST [Concomitant]
     Active Substance: MONTELUKAST SODIUM
     Indication: PRODUCT USED FOR UNKNOWN INDICATION
     Dosage: TAKING FOR YEARS; B.A.W.
     Route: 065
  8. OLANZAPIN [Suspect]
     Active Substance: OLANZAPINE
     Route: 065
     Dates: start: 20200713, end: 20200719

REACTIONS (3)
  - Restlessness [Unknown]
  - Weight increased [Recovering/Resolving]
  - Food craving [Recovering/Resolving]

NARRATIVE: CASE EVENT DATE: 2020
